FAERS Safety Report 19765085 (Version 1)
Quarter: 2021Q3

REPORT INFORMATION
  Report Type: Report from Study
  Country: CA (occurrence: CA)
  Receive Date: 20210831
  Receipt Date: 20210831
  Transmission Date: 20211014
  Serious: Yes (Hospitalization)
  Sender: FDA-Public Use
  Company Number: CA-JNJFOC-20210851830

PATIENT
  Age: 17 Year
  Sex: Male
  Weight: 71.2 kg

DRUGS (1)
  1. REMICADE [Suspect]
     Active Substance: INFLIXIMAB
     Indication: CROHN^S DISEASE
     Dosage: ON 25?AUG?2021, THE PATIENT RECEIVED 101TH INFUSION OF INFLIXIMAB, RECOMBINANT AT 600 MG
     Route: 042
     Dates: start: 20111122

REACTIONS (1)
  - Pyrexia [Unknown]

NARRATIVE: CASE EVENT DATE: 20210808
